FAERS Safety Report 5376985-6 (Version None)
Quarter: 2007Q2

REPORT INFORMATION
  Report Type: 
  Country: None (occurrence: None)
  Receive Date: 20070628
  Receipt Date: 20070628
  Transmission Date: 20071010
  Serious: Yes (Life-Threatening, Hospitalization, Other)
  Sender: FDA-Public Use
  Company Number: None

PATIENT
  Age: 51 Year
  Sex: Female

DRUGS (4)
  1. MARCAINE [Suspect]
     Indication: GENERAL ANAESTHESIA
     Dosage: 5CC .5 % MARCAINE  DENTAL
     Route: 004
     Dates: start: 20070621, end: 20070628
  2. MARCAINE [Suspect]
     Indication: TOOTH DISORDER
     Dosage: 5CC .5 % MARCAINE  DENTAL
     Route: 004
     Dates: start: 20070621, end: 20070628
  3. EPINEPHRINE [Suspect]
     Indication: NERVE BLOCK
     Dosage: 1:200,000 EPHINEPERINE DENTAL
     Route: 004
     Dates: start: 20070621, end: 20070628
  4. EPINEPHRINE [Suspect]
     Indication: TOOTH DISORDER
     Dosage: 1:200,000 EPHINEPERINE DENTAL
     Route: 004
     Dates: start: 20070621, end: 20070628

REACTIONS (10)
  - APHASIA [None]
  - CONFUSIONAL STATE [None]
  - CONVULSION [None]
  - COORDINATION ABNORMAL [None]
  - HYPERSENSITIVITY [None]
  - PHARYNGOLARYNGEAL PAIN [None]
  - RESPIRATORY DISTRESS [None]
  - SUICIDAL IDEATION [None]
  - SYNCOPE [None]
  - THINKING ABNORMAL [None]
